FAERS Safety Report 5029628-5 (Version None)
Quarter: 2006Q2

REPORT INFORMATION
  Report Type: 
  Country: None (occurrence: None)
  Receive Date: 20060503
  Receipt Date: 20060328
  Transmission Date: 20061013
  Serious: No
  Sender: FDA-Public Use
  Company Number: FACT0600192

PATIENT
  Age: 56 Year
  Sex: Female
  Weight: 70.3 kg

DRUGS (5)
  1. FACTIVE [Suspect]
     Indication: RESPIRATORY TRACT INFECTION BACTERIAL
     Dosage: 320 MG, QD, ORAL
     Route: 048
     Dates: start: 20060317, end: 20060323
  2. EVISTA [Concomitant]
  3. ACETAMINOPHEN [Concomitant]
  4. NASONEX (MOMETASONE FUROATE) SPRAY (EXCEPT INHALATION) [Concomitant]
  5. ASTELIN [Concomitant]

REACTIONS (1)
  - RASH MACULO-PAPULAR [None]
